FAERS Safety Report 10631546 (Version 1)
Quarter: 2014Q4

REPORT INFORMATION
  Report Type: Spontaneous
  Country: US (occurrence: US)
  Receive Date: 20141205
  Receipt Date: 20141205
  Transmission Date: 20150529
  Serious: No
  Sender: FDA-Public Use
  Company Number: US-BRISTOL-MYERS SQUIBB COMPANY-21025838

PATIENT
  Age: 28 Year
  Sex: Female
  Weight: 82.54 kg

DRUGS (1)
  1. BYETTA [Suspect]
     Active Substance: EXENATIDE
     Indication: TYPE 2 DIABETES MELLITUS
     Dosage: FROM UNK DATE IN 2014- 10MCG
     Route: 058
     Dates: start: 2014, end: 201405

REACTIONS (3)
  - Hypotension [Unknown]
  - Weight decreased [Unknown]
  - Blood glucose decreased [Recovered/Resolved]

NARRATIVE: CASE EVENT DATE: 2014
